FAERS Safety Report 19174753 (Version 2)
Quarter: 2021Q2

REPORT INFORMATION
  Report Type: Spontaneous
  Country: DE (occurrence: DE)
  Receive Date: 20210423
  Receipt Date: 20210429
  Transmission Date: 20210717
  Serious: No
  Sender: FDA-Public Use
  Company Number: DE-UCBSA-2021017789

PATIENT
  Age: 33 Year
  Sex: Female

DRUGS (22)
  1. AZATHIOPRINE. [Suspect]
     Active Substance: AZATHIOPRINE
     Indication: COGAN^S SYNDROME
  2. PREDNISOLONE. [Suspect]
     Active Substance: PREDNISOLONE
     Indication: DEAFNESS UNILATERAL
  3. CERTOLIZUMAB PEGOL [Suspect]
     Active Substance: CERTOLIZUMAB PEGOL
     Indication: OFF LABEL USE
  4. AZATHIOPRINE. [Suspect]
     Active Substance: AZATHIOPRINE
     Indication: IMMUNOSUPPRESSANT DRUG THERAPY
  5. BEPANTHEN [DEXPANTHENOL] [Concomitant]
     Active Substance: DEXPANTHENOL
     Indication: CONJUNCTIVITIS
     Dosage: EYE AND NOSE OINTMENT
     Route: 061
  6. BEPANTHEN [DEXPANTHENOL] [Concomitant]
     Active Substance: DEXPANTHENOL
     Indication: COGAN^S SYNDROME
  7. HYALURONIC ACID [Concomitant]
     Active Substance: HYALURONIC ACID
     Indication: CONJUNCTIVITIS
     Dosage: EYE DROPS
     Route: 061
  8. AZATHIOPRINE. [Suspect]
     Active Substance: AZATHIOPRINE
     Indication: DEAFNESS UNILATERAL
  9. AZATHIOPRINE. [Suspect]
     Active Substance: AZATHIOPRINE
     Indication: HYPOACUSIS
  10. PREDNISOLONE. [Suspect]
     Active Substance: PREDNISOLONE
     Indication: COGAN^S SYNDROME
     Dosage: 250MG TIMES 3
     Route: 040
  11. PREDNISOLONE. [Suspect]
     Active Substance: PREDNISOLONE
     Indication: IMMUNOSUPPRESSANT DRUG THERAPY
     Dosage: 15 MILLIGRAM, DAILY
     Route: 048
  12. PREDNISOLONE. [Suspect]
     Active Substance: PREDNISOLONE
     Indication: VERTIGO
  13. CERTOLIZUMAB PEGOL [Suspect]
     Active Substance: CERTOLIZUMAB PEGOL
     Indication: COGAN^S SYNDROME
     Dosage: 200MG EVERY OTHER WEEK
     Route: 058
  14. AZATHIOPRINE. [Suspect]
     Active Substance: AZATHIOPRINE
     Indication: TINNITUS
     Dosage: 100 MILLIGRAM, DAILY
  15. AZATHIOPRINE. [Suspect]
     Active Substance: AZATHIOPRINE
     Indication: VERTIGO
  16. AZATHIOPRINE. [Suspect]
     Active Substance: AZATHIOPRINE
     Indication: HYPOACUSIS
  17. AZATHIOPRINE. [Suspect]
     Active Substance: AZATHIOPRINE
     Indication: VERTIGO
  18. PREDNISOLONE. [Suspect]
     Active Substance: PREDNISOLONE
     Indication: TINNITUS
     Dosage: UNKNOWN DOSE
  19. PREDNISOLONE. [Suspect]
     Active Substance: PREDNISOLONE
     Indication: HYPOACUSIS
  20. HYALURONIC ACID [Concomitant]
     Active Substance: HYALURONIC ACID
     Indication: DRY EYE
  21. ADALIMUMAB [Concomitant]
     Active Substance: ADALIMUMAB
     Indication: COGAN^S SYNDROME
     Dosage: EVERY OTHER WEEK
  22. BEPANTHEN [DEXPANTHENOL] [Concomitant]
     Active Substance: DEXPANTHENOL
     Indication: DRY EYE
     Dosage: 5 PERCENT

REACTIONS (3)
  - Maternal exposure before pregnancy [Unknown]
  - Maternal exposure during breast feeding [Unknown]
  - Off label use [Unknown]
